APPROVED DRUG PRODUCT: METHIMAZOLE
Active Ingredient: METHIMAZOLE
Strength: 15MG
Dosage Form/Route: TABLET;ORAL
Application: A040619 | Product #003
Applicant: DISCOVERY THERAPEUTICS LLC
Approved: Jul 12, 2005 | RLD: No | RS: No | Type: DISCN